FAERS Safety Report 6576356-0 (Version None)
Quarter: 2010Q1

REPORT INFORMATION
  Report Type: 
  Country: None (occurrence: None)
  Receive Date: 20100210
  Receipt Date: 20091215
  Transmission Date: 20100710
  Serious: No
  Sender: FDA-Public Use
  Company Number: A0835293A

PATIENT
  Sex: Male

DRUGS (1)
  1. OLUX E [Suspect]
     Indication: PRURITUS
     Route: 061

REACTIONS (3)
  - DRY SKIN [None]
  - PALLOR [None]
  - SKIN EXFOLIATION [None]
